FAERS Safety Report 8686561 (Version 2)
Quarter: 2012Q4

REPORT INFORMATION
  Report Type: Report from Study
  Country: US (occurrence: US)
  Receive Date: 20120726
  Receipt Date: 20121119
  Transmission Date: 20130627
  Serious: No
  Sender: FDA-Public Use
  Company Number: US-GILEAD-2012-0058364

PATIENT
  Sex: Male

DRUGS (4)
  1. EMTRICITABINE/TENOFOVIR DISOPROXIL FUMARATE [Suspect]
     Indication: HIV INFECTION
     Dosage: 1 DF, QD
     Route: 064
     Dates: end: 20120904
  2. RITONAVIR [Suspect]
     Indication: HIV INFECTION
     Dosage: 100 mg, QD
     Route: 064
  3. REYATAZ [Suspect]
     Indication: HIV INFECTION
     Dosage: 300 mg, QD
     Route: 064
     Dates: end: 20120315
  4. REYATAZ [Suspect]
     Dosage: 400 mg, QD
     Route: 064
     Dates: start: 20120315, end: 20120904

REACTIONS (1)
  - Ultrasound scan abnormal [Unknown]
